FAERS Safety Report 10031792 (Version 2)
Quarter: 2014Q1

REPORT INFORMATION
  Report Type: Report from Study
  Country: JP (occurrence: JP)
  Receive Date: 20140324
  Receipt Date: 20140324
  Transmission Date: 20141002
  Serious: Yes (Death, Hospitalization, Other)
  Sender: FDA-Public Use
  Company Number: JP-SA-THYM-1003945

PATIENT
  Age: 61 Year
  Sex: Male
  Weight: 57 kg

DRUGS (16)
  1. THYMOGLOBULINE [Suspect]
     Indication: BONE MARROW CONDITIONING REGIMEN
     Dosage: 40 MG, QD (OVER 5 HOURS)
     Route: 065
     Dates: start: 20111216, end: 20111216
  2. THYMOGLOBULINE [Suspect]
     Indication: BONE MARROW CONDITIONING REGIMEN
     Dosage: 50 MG, QD (OVER 6 HOURS)
     Route: 065
     Dates: start: 20111217, end: 20111218
  3. TEICOPLANIN [Concomitant]
     Indication: INFECTION PROPHYLAXIS
     Dosage: UNK
     Route: 065
     Dates: end: 20120106
  4. FINIBAX [Concomitant]
     Indication: INFECTION PROPHYLAXIS
     Dosage: UNK
     Route: 065
     Dates: end: 20120106
  5. ITRACONAZOLE [Concomitant]
     Indication: INFECTION PROPHYLAXIS
     Dosage: UNK
     Route: 065
     Dates: end: 20120106
  6. FILGRASTIM [Concomitant]
     Indication: ACUTE MYELOID LEUKAEMIA
     Dosage: UNK
     Route: 065
     Dates: end: 20111228
  7. FILGRASTIM [Concomitant]
     Indication: HEPATITIS CHOLESTATIC
     Dosage: UNK
     Route: 065
     Dates: end: 20111228
  8. ACICLOVIR [Concomitant]
     Indication: INFECTION PROPHYLAXIS
     Dosage: UNK
     Route: 065
     Dates: end: 20120512
  9. RABEPRAZOLE SODIUM [Concomitant]
     Indication: GASTRITIS PROPHYLAXIS
     Dosage: UNK
     Route: 065
     Dates: end: 20120512
  10. VORICONAZOLE [Concomitant]
     Indication: INFECTION PROPHYLAXIS
     Dosage: UNK
     Route: 065
     Dates: end: 20111229
  11. LEVOFLOXACIN [Concomitant]
     Indication: INFECTION PROPHYLAXIS
     Dosage: UNK
     Route: 065
     Dates: end: 20120512
  12. TACROLIMUS [Concomitant]
     Indication: PROPHYLAXIS AGAINST GRAFT VERSUS HOST DISEASE
     Dosage: UNK
     Route: 065
     Dates: start: 20111216, end: 20120428
  13. METHYLPREDNISOLONE [Concomitant]
     Indication: PROPHYLAXIS AGAINST GRAFT VERSUS HOST DISEASE
     Dosage: UNK
     Route: 065
     Dates: start: 20111221, end: 20120428
  14. FOSCARNET SODIUM [Concomitant]
     Indication: INFECTION PROPHYLAXIS
     Dosage: UNK
     Route: 065
     Dates: start: 20120118, end: 20120512
  15. ALL OTHER THERAPEUTIC PRODUCTS [Concomitant]
     Indication: INFECTION PROPHYLAXIS
     Dosage: UNK
     Route: 065
     Dates: start: 20120118, end: 20120505
  16. GANCICLOVIR [Concomitant]
     Indication: INFECTION PROPHYLAXIS
     Dosage: UNK
     Route: 065
     Dates: start: 20120209, end: 20120430

REACTIONS (3)
  - Acute graft versus host disease in intestine [Unknown]
  - Protein-losing gastroenteropathy [Fatal]
  - Gastroenteritis norovirus [Not Recovered/Not Resolved]
